FAERS Safety Report 15662794 (Version 5)
Quarter: 2020Q2

REPORT INFORMATION
  Report Type: Spontaneous
  Country: US (occurrence: US)
  Receive Date: 20181127
  Receipt Date: 20200610
  Transmission Date: 20200713
  Serious: Yes (Other)
  Sender: FDA-Public Use
  Company Number: US-SA-2018SA174962

PATIENT

DRUGS (13)
  1. BENADRYL [Concomitant]
     Active Substance: DIPHENHYDRAMINE HYDROCHLORIDE
     Dosage: 25 MG, UNK
     Route: 042
     Dates: start: 20110802, end: 20110802
  2. TAXOTERE [Suspect]
     Active Substance: DOCETAXEL
     Indication: BREAST CANCER FEMALE
     Dosage: 135 MG, QW
     Route: 042
     Dates: start: 20110314, end: 20110314
  3. FEMARA [Concomitant]
     Active Substance: LETROZOLE
     Dosage: UNK
     Dates: start: 20041217
  4. FEMARA [Concomitant]
     Active Substance: LETROZOLE
     Dosage: UNK
     Route: 065
     Dates: start: 20090101
  5. FAMOTIDINE. [Concomitant]
     Active Substance: FAMOTIDINE
     Dosage: UNK
     Route: 065
     Dates: start: 20091116
  6. FEMARA [Concomitant]
     Active Substance: LETROZOLE
     Dosage: UNK
     Route: 065
     Dates: start: 20091116
  7. TAXOTERE [Suspect]
     Active Substance: DOCETAXEL
     Dosage: 135 MG, QW
     Route: 042
     Dates: start: 20110802, end: 20110802
  8. CYTOXAN [Concomitant]
     Active Substance: CYCLOPHOSPHAMIDE
     Dosage: UNK
     Route: 065
     Dates: start: 20110802, end: 20110802
  9. ADRIAMYCIN [Concomitant]
     Active Substance: DOXORUBICIN HYDROCHLORIDE
     Dosage: UNK MG
     Route: 065
     Dates: start: 20110802, end: 20110802
  10. CYTOXAN [Concomitant]
     Active Substance: CYCLOPHOSPHAMIDE
     Indication: BREAST CANCER FEMALE
     Dosage: UNK MG
     Route: 065
     Dates: start: 20110314, end: 20110314
  11. ADRIAMYCIN [Concomitant]
     Active Substance: DOXORUBICIN HYDROCHLORIDE
     Indication: BREAST CANCER FEMALE
     Dosage: UNK MG
     Route: 065
     Dates: start: 20110314, end: 20110314
  12. BENADRYL [Concomitant]
     Active Substance: DIPHENHYDRAMINE HYDROCHLORIDE
     Dosage: 25 MG, UNK
     Route: 042
     Dates: start: 20110321, end: 20110321
  13. FAMOTIDINE. [Concomitant]
     Active Substance: FAMOTIDINE
     Dosage: UNK
     Route: 065
     Dates: start: 20090101

REACTIONS (2)
  - Alopecia [Recovering/Resolving]
  - Psychological trauma [Unknown]

NARRATIVE: CASE EVENT DATE: 20110401
